FAERS Safety Report 11936340 (Version 2)
Quarter: 2016Q2

REPORT INFORMATION
  Report Type: Spontaneous
  Country: US (occurrence: US)
  Receive Date: 20160121
  Receipt Date: 20160509
  Transmission Date: 20160815
  Serious: Yes (Hospitalization, Other)
  Sender: FDA-Public Use
  Company Number: US-ASTRAZENECA-2016SE04294

PATIENT
  Age: 687 Month
  Sex: Female
  Weight: 112.9 kg

DRUGS (11)
  1. ARMOUR THYROID [Concomitant]
     Active Substance: THYROID, PORCINE
  2. BUMETANIDE. [Concomitant]
     Active Substance: BUMETANIDE
  3. FENOFIBRATE. [Concomitant]
     Active Substance: FENOFIBRATE
  4. PROAIR HFA [Concomitant]
     Active Substance: ALBUTEROL SULFATE
     Dosage: INHALER (OCCASIONALLY)
  5. SINGULAIR [Concomitant]
     Active Substance: MONTELUKAST SODIUM
  6. BYDUREON [Suspect]
     Active Substance: EXENATIDE
     Indication: GLUCOSE TOLERANCE IMPAIRED
     Route: 058
     Dates: start: 201310
  7. TRAMADOL. [Concomitant]
     Active Substance: TRAMADOL
  8. FOLIC ACID. [Concomitant]
     Active Substance: FOLIC ACID
  9. JANUVIA [Concomitant]
     Active Substance: SITAGLIPTIN PHOSPHATE
  10. SOMA [Concomitant]
     Active Substance: CARISOPRODOL
  11. VIMOVO [Concomitant]
     Active Substance: ESOMEPRAZOLE MAGNESIUM\NAPROXEN

REACTIONS (7)
  - Upper limb fracture [Unknown]
  - Drug dose omission [Unknown]
  - Nephrolithiasis [Unknown]
  - Fall [Unknown]
  - Device difficult to use [Unknown]
  - Needle issue [Unknown]
  - Weight decreased [Unknown]

NARRATIVE: CASE EVENT DATE: 201310
